FAERS Safety Report 6454840-8 (Version None)
Quarter: 2009Q4

REPORT INFORMATION
  Report Type: 
  Country: None (occurrence: None)
  Receive Date: 20091124
  Receipt Date: 20091113
  Transmission Date: 20100525
  Serious: Yes (Other)
  Sender: FDA-Public Use
  Company Number: US-PFIZER INC-2009299375

PATIENT
  Sex: Female
  Weight: 80.726 kg

DRUGS (5)
  1. LYRICA [Suspect]
     Dosage: 50 MG, 4X/DAY
     Dates: start: 20080101
  2. DAYPRO [Suspect]
     Indication: ANTIINFLAMMATORY THERAPY
     Dosage: 600 MG, 1X/DAY
     Dates: start: 20090101
  3. MORPHINE [Concomitant]
     Dosage: 30 MG, 4X/DAY
  4. METHADONE [Concomitant]
     Dosage: 5 MG, 4X/DAY
  5. ZIAC [Concomitant]
     Dosage: UNK
     Dates: start: 20090101, end: 20090101

REACTIONS (12)
  - ARTHRALGIA [None]
  - ARTHRITIS [None]
  - DRUG INEFFECTIVE [None]
  - DYSPNOEA [None]
  - FORMICATION [None]
  - GAIT DISTURBANCE [None]
  - HYPERSENSITIVITY [None]
  - LIGAMENT RUPTURE [None]
  - MENISCUS OPERATION [None]
  - OEDEMA PERIPHERAL [None]
  - SWELLING FACE [None]
  - VEIN DISORDER [None]
